FAERS Safety Report 14799737 (Version 3)
Quarter: 2019Q1

REPORT INFORMATION
  Report Type: Report from Study
  Country: DE (occurrence: DE)
  Receive Date: 20180424
  Receipt Date: 20190322
  Transmission Date: 20190417
  Serious: Yes (Hospitalization, Other)
  Sender: FDA-Public Use
  Company Number: DE-MYLANLABS-2018M1025320

PATIENT
  Sex: Male
  Weight: 60 kg

DRUGS (16)
  1. HUMIRA [Suspect]
     Active Substance: ADALIMUMAB
     Indication: PSORIASIS
  2. HUMIRA [Suspect]
     Active Substance: ADALIMUMAB
     Indication: HIDRADENITIS
     Dosage: 40 MILLIGRAM, QW
     Route: 058
     Dates: start: 2017, end: 20170722
  3. HUMIRA [Suspect]
     Active Substance: ADALIMUMAB
     Dosage: 160 MILLIGRAM
     Route: 058
     Dates: start: 20180906, end: 20180906
  4. TRAMAL LONG [Suspect]
     Active Substance: TRAMADOL
     Indication: PRODUCT USED FOR UNKNOWN INDICATION
     Dosage: 200 MG, QD
     Route: 065
     Dates: start: 20170729, end: 20170810
  5. MORPHINE [Suspect]
     Active Substance: MORPHINE
     Dosage: 4 ML, UNK (IN ADDITION, IF REQUIRED)
     Route: 042
     Dates: start: 20170729
  6. DEKRISTOL [Concomitant]
     Active Substance: CHOLECALCIFEROL
     Indication: PRODUCT USED FOR UNKNOWN INDICATION
     Dosage: UNK
  7. IBUPROFEN. [Concomitant]
     Active Substance: IBUPROFEN
     Indication: PRODUCT USED FOR UNKNOWN INDICATION
     Dosage: UNK, PRN
     Dates: start: 2014
  8. PANTOPRAZOLE                       /01263204/ [Suspect]
     Active Substance: PANTOPRAZOLE SODIUM
     Indication: PRODUCT USED FOR UNKNOWN INDICATION
     Dosage: 40 MG, QD
     Route: 065
     Dates: start: 20170729, end: 20170810
  9. HUMIRA [Suspect]
     Active Substance: ADALIMUMAB
     Indication: HIDRADENITIS
     Dosage: 40 MG, QW
     Route: 058
     Dates: start: 20160412, end: 201705
  10. MORPHINE [Suspect]
     Active Substance: MORPHINE
     Indication: PRODUCT USED FOR UNKNOWN INDICATION
     Dosage: 6 ML, QH
     Route: 042
     Dates: start: 20170729
  11. HUMIRA [Suspect]
     Active Substance: ADALIMUMAB
     Indication: PSORIASIS
     Dosage: UNK
  12. ZOLPIDEM [Suspect]
     Active Substance: ZOLPIDEM\ZOLPIDEM TARTRATE
     Indication: PRODUCT USED FOR UNKNOWN INDICATION
     Dosage: 5 MG, UNK
     Route: 065
     Dates: start: 20170729, end: 20170810
  13. HUMIRA [Suspect]
     Active Substance: ADALIMUMAB
     Dosage: 40 MILLIGRAM, QW
     Route: 058
     Dates: start: 201707, end: 201802
  14. NOVAMINSULFON [Suspect]
     Active Substance: METAMIZOLE
     Indication: PRODUCT USED FOR UNKNOWN INDICATION
     Dosage: 120 GTT, QD
     Route: 065
     Dates: start: 20170729, end: 20170810
  15. HUMIRA [Suspect]
     Active Substance: ADALIMUMAB
     Indication: PSORIASIS
     Dosage: 40 MILLIGRAM, QW
     Route: 058
     Dates: start: 201708
  16. TRAMAL [Suspect]
     Active Substance: TRAMADOL
     Indication: PRODUCT USED FOR UNKNOWN INDICATION
     Dosage: 3 TIMES PER DAY AS REQUIRED
     Route: 065
     Dates: start: 20170729, end: 20170810

REACTIONS (11)
  - Abscess [Recovering/Resolving]
  - Pneumothorax [Recovered/Resolved]
  - Dandruff [Recovered/Resolved]
  - Rash erythematous [Recovered/Resolved]
  - Rash [Recovered/Resolved]
  - Psoriasis [Not Recovered/Not Resolved]
  - Pneumothorax spontaneous [Recovered/Resolved]
  - Hidradenitis [Not Recovered/Not Resolved]
  - Scab [Recovered/Resolved]
  - Drug specific antibody present [Unknown]
  - Rash pruritic [Recovered/Resolved]

NARRATIVE: CASE EVENT DATE: 201605
